FAERS Safety Report 16779472 (Version 1)
Quarter: 2019Q3

REPORT INFORMATION
  Report Type: Spontaneous
  Country: US (occurrence: US)
  Receive Date: 20190716
  Receipt Date: 20190716
  Transmission Date: 20191005
  Serious: No
  Sender: FDA-Public Use
  Company Number: None

PATIENT
  Age: 49 Year
  Sex: Male
  Weight: 117.93 kg

DRUGS (2)
  1. ROSUVASTATIN. [Suspect]
     Active Substance: ROSUVASTATIN
     Indication: DIABETES MELLITUS
     Dosage: ?          OTHER DOSE:2.5(HALF) MG;OTHER FREQUENCY:UNKNOWN;?
     Route: 048
     Dates: start: 20181016, end: 20190603
  2. ROSUVASTATIN. [Suspect]
     Active Substance: ROSUVASTATIN
     Indication: HYPERLIPIDAEMIA
     Dosage: ?          OTHER DOSE:2.5(HALF) MG;OTHER FREQUENCY:UNKNOWN;?
     Route: 048
     Dates: start: 20181016, end: 20190603

REACTIONS (2)
  - Pruritus [None]
  - Urticaria [None]

NARRATIVE: CASE EVENT DATE: 20190603
